FAERS Safety Report 23899246 (Version 1)
Quarter: 2024Q2

REPORT INFORMATION
  Report Type: Spontaneous
  Country: ES (occurrence: ES)
  Receive Date: 20240526
  Receipt Date: 20240526
  Transmission Date: 20240716
  Serious: Yes (Hospitalization, Other)
  Sender: FDA-Public Use
  Company Number: ES-AEMPS-1520861

PATIENT
  Age: 77 Year
  Sex: Male

DRUGS (2)
  1. IBUPROFEN [Suspect]
     Active Substance: IBUPROFEN
     Indication: Respiratory tract infection
     Dosage: 600 MILLIGRAM, 3 TIMES A DAY (1 CADA 8 HORAS)
     Route: 048
     Dates: start: 20240326, end: 20240328
  2. AMOXICILLIN [Concomitant]
     Active Substance: AMOXICILLIN
     Indication: Respiratory tract infection
     Dosage: 1 DOSAGE FORM, 3 TIMES A DAY (1 CADA 8 HORAS)
     Route: 048
     Dates: start: 20240326, end: 20240328

REACTIONS (2)
  - Acute kidney injury [Recovered/Resolved]
  - Hyperkalaemia [Recovered/Resolved]

NARRATIVE: CASE EVENT DATE: 20240328
